FAERS Safety Report 4393971-3 (Version None)
Quarter: 2004Q3

REPORT INFORMATION
  Report Type: 
  Country: None (occurrence: None)
  Receive Date: 20040702
  Receipt Date: 20040621
  Transmission Date: 20050211
  Serious: Yes (Other)
  Sender: FDA-Public Use
  Company Number: 2004033886

PATIENT
  Sex: Female
  Weight: 58.9676 kg

DRUGS (4)
  1. DILANTIN [Suspect]
     Indication: CONVULSION
     Dates: start: 19580101
  2. ALL OTHER NON-THERAPEUTIC PRODUCTS (ALL OTHER NON-THERAPEUTICPRODUCTS) [Concomitant]
  3. PROGESTERONE [Concomitant]
  4. PRASTERONE (PRASTERONE) [Concomitant]

REACTIONS (12)
  - BODY HEIGHT DECREASED [None]
  - FIBROMYALGIA [None]
  - GRAND MAL CONVULSION [None]
  - HYPOAESTHESIA [None]
  - INFLUENZA [None]
  - MENOPAUSE [None]
  - NEUROPATHY [None]
  - OSTEOPOROSIS [None]
  - PARAESTHESIA [None]
  - PLANTAR FASCIITIS [None]
  - STRESS SYMPTOMS [None]
  - VITAMIN D DECREASED [None]
